FAERS Safety Report 5926384-0 (Version None)
Quarter: 2008Q4

REPORT INFORMATION
  Report Type: 
  Country: None (occurrence: None)
  Receive Date: 20081022
  Receipt Date: 20081008
  Transmission Date: 20090506
  Serious: Yes (Hospitalization, Other)
  Sender: FDA-Public Use
  Company Number: NZ-ELI_LILLY_AND_COMPANY-NZ200806005441

PATIENT
  Age: 42 Year
  Sex: Female

DRUGS (1)
  1. BYETTA [Suspect]
     Indication: TYPE 2 DIABETES MELLITUS
     Dosage: UNK, UNKNOWN
     Route: 065
     Dates: start: 20071001

REACTIONS (3)
  - MYOCARDIAL INFARCTION [None]
  - SYNCOPE [None]
  - WEIGHT DECREASED [None]
